FAERS Safety Report 9529034 (Version 1)
Quarter: 2013Q3

REPORT INFORMATION
  Report Type: Spontaneous
  Country: US (occurrence: US)
  Receive Date: 20130917
  Receipt Date: 20130917
  Transmission Date: 20140515
  Serious: Yes (Other)
  Sender: FDA-Public Use
  Company Number: US-GILEAD-2013-0083445

PATIENT
  Sex: Female

DRUGS (1)
  1. LETAIRIS [Suspect]
     Indication: PRODUCT USED FOR UNKNOWN INDICATION
     Dosage: 5 MG, QD
     Dates: start: 20120127

REACTIONS (7)
  - Sarcoidosis [Unknown]
  - Ear infection [Unknown]
  - Haemoptysis [Unknown]
  - Presyncope [Unknown]
  - Asthma [Unknown]
  - Asthenia [Unknown]
  - Fatigue [Unknown]
